FAERS Safety Report 17624601 (Version 3)
Quarter: 2020Q2

REPORT INFORMATION
  Report Type: Spontaneous
  Country: US (occurrence: US)
  Receive Date: 20200403
  Receipt Date: 20200504
  Transmission Date: 20200713
  Serious: No
  Sender: FDA-Public Use
  Company Number: US-009507513-2004USA001278

PATIENT
  Age: 58 Year
  Sex: Female

DRUGS (2)
  1. ASMANEX [Suspect]
     Active Substance: MOMETASONE FUROATE
     Dosage: 120 DOSES; 1 PUFF TWICE A DAY
     Dates: start: 20200323
  2. ASMANEX [Suspect]
     Active Substance: MOMETASONE FUROATE
     Dosage: 120 DOSES; 1 PUFF TWICE A DAY
     Dates: start: 20200323

REACTIONS (6)
  - Incorrect dose administered [Unknown]
  - Product quality issue [Unknown]
  - No adverse event [Unknown]
  - Product expiration date issue [Unknown]
  - Poor quality device used [Unknown]
  - Product lot number issue [Unknown]

NARRATIVE: CASE EVENT DATE: 20200323
